FAERS Safety Report 16977197 (Version 2)
Quarter: 2019Q4

REPORT INFORMATION
  Report Type: Spontaneous
  Country: US (occurrence: US)
  Receive Date: 20191031
  Receipt Date: 20191112
  Transmission Date: 20200122
  Serious: No
  Sender: FDA-Public Use
  Company Number: US-009507513-1910USA016272

PATIENT
  Age: 36 Year
  Sex: Female

DRUGS (1)
  1. GANIRELIX ACETATE. [Suspect]
     Active Substance: GANIRELIX ACETATE
     Indication: INFERTILITY FEMALE
     Dosage: STRENGTH: 250 MCG/0.5M
     Route: 058
     Dates: start: 20191010

REACTIONS (1)
  - Rash [Unknown]

NARRATIVE: CASE EVENT DATE: 20191010
